FAERS Safety Report 9642146 (Version 1)
Quarter: 2013Q4

REPORT INFORMATION
  Report Type: Report from Study
  Country: DE (occurrence: DE)
  Receive Date: 20131023
  Receipt Date: 20131023
  Transmission Date: 20140711
  Serious: No
  Sender: FDA-Public Use
  Company Number: PHHY2013DE118367

PATIENT
  Sex: Male
  Weight: 104 kg

DRUGS (8)
  1. AMN107 [Suspect]
     Indication: CHRONIC MYELOID LEUKAEMIA
     Dosage: 600 MG, PER DAY
     Route: 048
     Dates: start: 20120912
  2. RAMIPRIL [Concomitant]
     Dates: start: 20100503
  3. DOLCELOX [Concomitant]
     Dates: start: 20121215, end: 20121220
  4. AMLODIPINE [Concomitant]
     Dosage: UNK
     Dates: start: 20121204
  5. MAGNESIUM VERLA TABLET [Concomitant]
     Dates: start: 20121218
  6. LACTOSE [Concomitant]
     Dates: start: 20130312
  7. MUCOFALK [Concomitant]
     Dates: start: 20130312
  8. TENSOFLUX [Concomitant]
     Dates: start: 20121204

REACTIONS (3)
  - Alopecia [Not Recovered/Not Resolved]
  - Rash [Not Recovered/Not Resolved]
  - Muscle spasms [Recovered/Resolved]
